FAERS Safety Report 15758005 (Version 1)
Quarter: 2018Q4

REPORT INFORMATION
  Report Type: Spontaneous
  Country: CN (occurrence: CN)
  Receive Date: 20181225
  Receipt Date: 20181225
  Transmission Date: 20190205
  Serious: Yes (Hospitalization)
  Sender: FDA-Public Use
  Company Number: CN-ROCHE-2233591

PATIENT
  Age: 75 Year
  Sex: Male

DRUGS (49)
  1. MABTHERA [Suspect]
     Active Substance: RITUXIMAB
     Dosage: ON DAY 0
     Route: 041
     Dates: start: 20160216
  2. CYCLOPHOSPHAMIDE. [Concomitant]
     Active Substance: CYCLOPHOSPHAMIDE
     Dosage: ON DAY 1
     Route: 041
     Dates: start: 20151230
  3. DOXORUBICIN [Concomitant]
     Active Substance: DOXORUBICIN
     Indication: MANTLE CELL LYMPHOMA
     Dosage: ON DAY 1
     Route: 041
     Dates: start: 20151026
  4. DOXORUBICIN [Concomitant]
     Active Substance: DOXORUBICIN
     Dosage: ON DAY 1
     Route: 041
     Dates: start: 20160121
  5. PREDNISONE. [Concomitant]
     Active Substance: PREDNISONE
     Dosage: FROM DAY 1 TO DAY 5
     Route: 048
     Dates: start: 20160216
  6. LENALIDOMIDE [Concomitant]
     Active Substance: LENALIDOMIDE
     Dosage: FROM DAY 1 TO DAY 21
     Route: 048
     Dates: start: 201707
  7. LENALIDOMIDE [Concomitant]
     Active Substance: LENALIDOMIDE
     Dosage: FROM DAY 1 TO DAY 21
     Route: 048
     Dates: start: 201708
  8. MABTHERA [Suspect]
     Active Substance: RITUXIMAB
     Dosage: ON DAY 0
     Route: 041
     Dates: start: 201706
  9. DOXORUBICIN [Concomitant]
     Active Substance: DOXORUBICIN
     Dosage: ON DAY 1
     Route: 041
     Dates: start: 20160216
  10. LENALIDOMIDE [Concomitant]
     Active Substance: LENALIDOMIDE
     Dosage: FROM DAY 1 TO DAY 14
     Route: 048
     Dates: start: 201612
  11. CYCLOPHOSPHAMIDE. [Concomitant]
     Active Substance: CYCLOPHOSPHAMIDE
     Dosage: ON DAY 1
     Route: 041
     Dates: start: 20160121
  12. CYCLOPHOSPHAMIDE. [Concomitant]
     Active Substance: CYCLOPHOSPHAMIDE
     Dosage: ON DAY 1
     Route: 041
     Dates: start: 20160216
  13. CYCLOPHOSPHAMIDE. [Concomitant]
     Active Substance: CYCLOPHOSPHAMIDE
     Dosage: ON DAY 5
     Route: 041
     Dates: start: 201706
  14. VINDESINE [Concomitant]
     Active Substance: VINDESINE
     Indication: MANTLE CELL LYMPHOMA
     Dosage: ON DAY 1
     Route: 041
     Dates: start: 20151026
  15. LENALIDOMIDE [Concomitant]
     Active Substance: LENALIDOMIDE
     Dosage: FROM DAY 1 TO DAY 21
     Route: 048
     Dates: start: 201809
  16. MABTHERA [Suspect]
     Active Substance: RITUXIMAB
     Dosage: ON DAY 0
     Route: 041
     Dates: start: 20151230
  17. MABTHERA [Suspect]
     Active Substance: RITUXIMAB
     Dosage: ON DAY 0
     Route: 041
     Dates: start: 201712
  18. CYCLOPHOSPHAMIDE. [Concomitant]
     Active Substance: CYCLOPHOSPHAMIDE
     Indication: MANTLE CELL LYMPHOMA
     Dosage: ON DAY 1
     Route: 041
     Dates: start: 20151026
  19. CYCLOPHOSPHAMIDE. [Concomitant]
     Active Substance: CYCLOPHOSPHAMIDE
     Dosage: ON DAY 1
     Route: 041
     Dates: start: 20151209
  20. VINDESINE [Concomitant]
     Active Substance: VINDESINE
     Dosage: ON DAY 1
     Route: 041
     Dates: start: 20151209
  21. PREDNISONE. [Concomitant]
     Active Substance: PREDNISONE
     Dosage: FROM DAY 1 TO DAY 5
     Route: 048
     Dates: start: 20151118
  22. MABTHERA [Suspect]
     Active Substance: RITUXIMAB
     Indication: MANTLE CELL LYMPHOMA
     Dosage: ON DAY 0
     Route: 041
     Dates: start: 20151026
  23. MABTHERA [Suspect]
     Active Substance: RITUXIMAB
     Dosage: ON DAY 0
     Route: 041
     Dates: start: 201708
  24. MABTHERA [Suspect]
     Active Substance: RITUXIMAB
     Dosage: ON DAY 0
     Route: 041
     Dates: start: 201709
  25. MABTHERA [Suspect]
     Active Substance: RITUXIMAB
     Route: 041
     Dates: start: 201806
  26. VINDESINE [Concomitant]
     Active Substance: VINDESINE
     Dosage: ON DAY 1
     Route: 041
     Dates: start: 20160216
  27. PREDNISONE. [Concomitant]
     Active Substance: PREDNISONE
     Indication: MANTLE CELL LYMPHOMA
     Dosage: FROM DAY 1 TO DAY 5
     Route: 048
     Dates: start: 20151026
  28. PREDNISONE. [Concomitant]
     Active Substance: PREDNISONE
     Dosage: FROM DAY 1 TO DAY 5
     Route: 065
     Dates: start: 20151209
  29. MABTHERA [Suspect]
     Active Substance: RITUXIMAB
     Dosage: ON DAY 0
     Route: 041
     Dates: start: 20151118
  30. DOXORUBICIN [Concomitant]
     Active Substance: DOXORUBICIN
     Dosage: ON DAY 1
     Route: 041
     Dates: start: 20151230
  31. DOXORUBICIN [Concomitant]
     Active Substance: DOXORUBICIN
     Dosage: ON DAY 1
     Route: 041
     Dates: start: 201706
  32. VINDESINE [Concomitant]
     Active Substance: VINDESINE
     Dosage: ON DAY 1
     Route: 041
     Dates: start: 20151118
  33. VINDESINE [Concomitant]
     Active Substance: VINDESINE
     Dosage: ON DAY 1
     Route: 041
     Dates: start: 20151230
  34. VINDESINE [Concomitant]
     Active Substance: VINDESINE
     Dosage: ON DAY 1
     Route: 041
     Dates: start: 20160121
  35. VINDESINE [Concomitant]
     Active Substance: VINDESINE
     Dosage: FROM DAY 1 TO DAY 4
     Route: 041
     Dates: start: 201706
  36. PREDNISONE. [Concomitant]
     Active Substance: PREDNISONE
     Dosage: FROM DAY 1 TO DAY 5
     Route: 048
     Dates: start: 20160121
  37. PREDNISONE. [Concomitant]
     Active Substance: PREDNISONE
     Dosage: FROM DAY 1 TO DAY 5
     Route: 048
     Dates: start: 201706
  38. LENALIDOMIDE [Concomitant]
     Active Substance: LENALIDOMIDE
     Indication: MANTLE CELL LYMPHOMA
     Dosage: FROM DAY 1 TO DAY 21
     Route: 048
     Dates: start: 201603
  39. MABTHERA [Suspect]
     Active Substance: RITUXIMAB
     Route: 041
     Dates: start: 201710
  40. DOXORUBICIN [Concomitant]
     Active Substance: DOXORUBICIN
     Dosage: ON DAY 1
     Route: 041
     Dates: start: 20151209
  41. PREDNISONE. [Concomitant]
     Active Substance: PREDNISONE
     Dosage: FROM DAY 1 TO DAY 5
     Route: 048
     Dates: start: 20151230
  42. LENALIDOMIDE [Concomitant]
     Active Substance: LENALIDOMIDE
     Route: 065
     Dates: start: 201606
  43. LENALIDOMIDE [Concomitant]
     Active Substance: LENALIDOMIDE
     Route: 065
     Dates: start: 201710
  44. ETOPOSIDE PHOSPHATE [Concomitant]
     Active Substance: ETOPOSIDE PHOSPHATE
     Indication: MANTLE CELL LYMPHOMA
     Dosage: FROM DAY 1 TO DAY 4
     Route: 041
     Dates: start: 201706
  45. MABTHERA [Suspect]
     Active Substance: RITUXIMAB
     Dosage: ON DAY 0
     Route: 041
     Dates: start: 20151209
  46. MABTHERA [Suspect]
     Active Substance: RITUXIMAB
     Dosage: ON DAY 0
     Route: 041
     Dates: start: 20160121
  47. MABTHERA [Suspect]
     Active Substance: RITUXIMAB
     Dosage: ON DAY 0
     Route: 041
     Dates: start: 201707
  48. CYCLOPHOSPHAMIDE. [Concomitant]
     Active Substance: CYCLOPHOSPHAMIDE
     Dosage: ON DAY 1
     Route: 041
     Dates: start: 20151118
  49. DOXORUBICIN [Concomitant]
     Active Substance: DOXORUBICIN
     Dosage: ON DAY 1
     Route: 041
     Dates: start: 20151118

REACTIONS (8)
  - Intentional product use issue [Unknown]
  - Ill-defined disorder [Recovered/Resolved]
  - Asthenia [Recovered/Resolved]
  - Off label use [Unknown]
  - Mental disorder [Recovered/Resolved]
  - Diarrhoea [Recovered/Resolved]
  - Pyrexia [Recovered/Resolved]
  - Decreased appetite [Recovered/Resolved]

NARRATIVE: CASE EVENT DATE: 201606
